FAERS Safety Report 6683952-9 (Version None)
Quarter: 2010Q2

REPORT INFORMATION
  Report Type: 
  Country: None (occurrence: None)
  Receive Date: 20100416
  Receipt Date: 20100408
  Transmission Date: 20101027
  Serious: Yes (Hospitalization, Other)
  Sender: FDA-Public Use
  Company Number: US-PFIZER INC-2009227184

PATIENT
  Sex: Female
  Weight: 68.934 kg

DRUGS (21)
  1. TOVIAZ [Suspect]
     Indication: HYPERTONIC BLADDER
     Dosage: 4 MG, 1X/DAY
     Route: 048
     Dates: start: 20080101
  2. TOVIAZ [Suspect]
     Dosage: 8 MG, 1X/DAY
     Route: 048
  3. ZETIA [Concomitant]
     Dosage: UNK
  4. ZOLOFT [Concomitant]
     Indication: DEPRESSION
     Dosage: 150 MG, 1X/DAY
     Route: 048
  5. PLAVIX [Concomitant]
     Indication: THROMBOSIS PROPHYLAXIS
     Dosage: 75 MG, UNK
     Route: 048
  6. METOPROLOL [Concomitant]
     Dosage: 35 MG, 2X/DAY
     Route: 048
  7. CELEBREX [Concomitant]
     Indication: ARTHRITIS
     Dosage: 400 MG, 3X/DAY
     Route: 048
  8. CELEBREX [Concomitant]
     Indication: SPINAL COLUMN STENOSIS
  9. LIPITOR [Concomitant]
     Dosage: 40 MG, 1X/DAY
     Route: 048
  10. ACETYLSALICYLIC ACID [Concomitant]
     Indication: CARDIAC DISORDER
     Dosage: 81 MG, 1X/DAY
     Route: 048
  11. CALCIUM WITH VITAMIN D [Concomitant]
     Dosage: 750 MG, 2X/DAY
     Route: 048
  12. ACTONEL [Concomitant]
     Indication: DYSPEPSIA
     Dosage: 150 MG, MONTHLY
     Route: 048
  13. ACIPHEX [Concomitant]
     Indication: GASTROOESOPHAGEAL REFLUX DISEASE
     Dosage: 20 MG, 1X/DAY
     Route: 048
  14. CLOBETASOL [Concomitant]
     Dosage: 0.5 %, AS NEEDED
     Route: 067
  15. BETAMETHASONE DIPROPIONATE/CLOTRIMAZOLE [Concomitant]
     Dosage: FREQUENCY: 2X/DAY
  16. DENAVIR [Concomitant]
     Indication: ORAL HERPES
     Dosage: FREQUENCY: AS NEEDED
  17. FLUCONAZOLE [Concomitant]
     Dosage: UNK
  18. LEVSIN [Concomitant]
     Dosage: 0.125 MG, 1X/DAY
     Route: 048
  19. PSYLLIUM HYDROPHILIC MUCILLOID [Concomitant]
     Dosage: FREQUENCY: 3X/DAY
  20. MULTI-VITAMINS [Concomitant]
     Dosage: UNK
  21. PREMARIN [Concomitant]
     Dosage: 0.65 MG, AS NEEDED
     Route: 067

REACTIONS (4)
  - DRUG EFFECT DECREASED [None]
  - JOINT DISLOCATION [None]
  - OEDEMA PERIPHERAL [None]
  - TRIGGER FINGER [None]
